FAERS Safety Report 17174271 (Version 2)
Quarter: 2020Q1

REPORT INFORMATION
  Report Type: Report from Study
  Country: AU (occurrence: AU)
  Receive Date: 20191219
  Receipt Date: 20200103
  Transmission Date: 20200409
  Serious: Yes (Hospitalization)
  Sender: FDA-Public Use
  Company Number: PHHO2019AU009096

PATIENT
  Age: 67 Year
  Sex: Male
  Weight: 76.4 kg

DRUGS (25)
  1. BEVACIZUMAB. [Suspect]
     Active Substance: BEVACIZUMAB
     Indication: COLORECTAL CANCER METASTATIC
     Dosage: 400 MG, Q2W
     Route: 042
     Dates: start: 20190820
  2. OXALIPLATIN. [Suspect]
     Active Substance: OXALIPLATIN
     Dosage: 170 MG/KG, Q2W
     Route: 042
     Dates: start: 20190924
  3. LEUCOVORIN. [Suspect]
     Active Substance: LEUCOVORIN
     Indication: COLORECTAL CANCER METASTATIC
     Dosage: 800 MG, Q2W
     Route: 042
     Dates: start: 20190820, end: 20190923
  4. DEXAMETHASONE. [Concomitant]
     Active Substance: DEXAMETHASONE
     Indication: COLORECTAL CANCER METASTATIC
     Dosage: UNK
     Route: 065
     Dates: start: 20190820
  5. SODIUM CHLORIDE. [Concomitant]
     Active Substance: SODIUM CHLORIDE
     Indication: COLORECTAL CANCER METASTATIC
     Dosage: UNK
     Route: 065
     Dates: start: 20190820
  6. HEPARINISED SALINE [Concomitant]
     Active Substance: HEPARIN SODIUM
     Indication: PROPHYLAXIS
     Dosage: UNK
     Route: 065
     Dates: start: 20190806
  7. ENOXAPARIN [Concomitant]
     Active Substance: ENOXAPARIN
     Indication: THROMBOPHLEBITIS
     Dosage: UNK
     Route: 065
     Dates: start: 20190910
  8. OXYCODONE [Concomitant]
     Active Substance: OXYCODONE
     Indication: STOMA SITE PAIN
     Dosage: UNK
     Route: 065
     Dates: start: 20190909
  9. LEUCOVORIN. [Suspect]
     Active Substance: LEUCOVORIN
     Dosage: 800 MG/KG, Q2W
     Route: 042
     Dates: start: 20190924
  10. METOCLOPRAMIDE. [Concomitant]
     Active Substance: METOCLOPRAMIDE
     Indication: COLORECTAL CANCER METASTATIC
     Dosage: UNK
     Route: 065
     Dates: start: 20190820
  11. DEXAMETHASONE. [Concomitant]
     Active Substance: DEXAMETHASONE
     Dosage: UNK
     Route: 065
     Dates: start: 20190821
  12. MIRTAPINE [Concomitant]
     Indication: DEPRESSION
     Dosage: UNK
     Route: 065
     Dates: start: 20040101
  13. DUODART [Concomitant]
     Active Substance: DUTASTERIDE\TAMSULOSIN
     Indication: PROSTATOMEGALY
     Dosage: UNK
     Route: 065
     Dates: start: 20190704
  14. PETER MAC MOUTHWASH POWDER [Concomitant]
     Indication: APHTHOUS ULCER
     Dosage: UNK
     Route: 065
     Dates: start: 20190909
  15. GEVOKIZUMAB [Suspect]
     Active Substance: GEVOKIZUMAB
     Indication: COLORECTAL CANCER METASTATIC
     Dosage: 60 MG, Q4W
     Route: 042
     Dates: start: 20190806, end: 20190923
  16. OXALIPLATIN. [Suspect]
     Active Substance: OXALIPLATIN
     Indication: COLORECTAL CANCER METASTATIC
     Dosage: 170 MG, Q2W
     Route: 042
     Dates: start: 20190820, end: 20190923
  17. PANADOL [Concomitant]
     Active Substance: ACETAMINOPHEN
     Indication: STOMA SITE PAIN
     Dosage: UNK
     Route: 065
     Dates: start: 20190612
  18. PALONOSETRON. [Concomitant]
     Active Substance: PALONOSETRON HYDROCHLORIDE
     Indication: COLORECTAL CANCER METASTATIC
     Dosage: UNK
     Route: 065
     Dates: start: 20190820
  19. CLEXANE [Concomitant]
     Active Substance: ENOXAPARIN SODIUM
     Indication: THROMBOPHLEBITIS
     Dosage: UNK
     Route: 065
     Dates: start: 20190812, end: 20191020
  20. ONDANSETRON [Concomitant]
     Active Substance: ONDANSETRON
     Indication: NAUSEA
     Dosage: UNK
     Route: 065
     Dates: start: 20190910, end: 20190910
  21. 5-FLUOROURACIL [Suspect]
     Active Substance: FLUOROURACIL
     Indication: COLORECTAL CANCER METASTATIC
     Dosage: 775 MG, Q2W
     Route: 042
     Dates: start: 20190820, end: 20190923
  22. 5-FLUOROURACIL [Suspect]
     Active Substance: FLUOROURACIL
     Dosage: 775 MG/KG, Q2W
     Route: 042
     Dates: start: 20190924
  23. NETUPITANT [Concomitant]
     Active Substance: NETUPITANT
     Indication: PROPHYLAXIS OF NAUSEA AND VOMITING
     Dosage: UNK
     Route: 065
     Dates: start: 20190820
  24. TARGIN [Concomitant]
     Active Substance: NALOXONE HYDROCHLORIDE\OXYCODONE HYDROCHLORIDE
     Indication: STOMA SITE PAIN
     Dosage: UNK
     Route: 065
     Dates: start: 20190722
  25. GEVOKIZUMAB [Suspect]
     Active Substance: GEVOKIZUMAB
     Dosage: 60 MG, Q2W
     Route: 042
     Dates: start: 20190924

REACTIONS (2)
  - Pyrexia [Recovered/Resolved]
  - Colitis [Recovered/Resolved]

NARRATIVE: CASE EVENT DATE: 20190907
